FAERS Safety Report 11610753 (Version 2)
Quarter: 2015Q4

REPORT INFORMATION
  Report Type: Spontaneous
  Country: US (occurrence: US)
  Receive Date: 20151008
  Receipt Date: 20151020
  Transmission Date: 20160304
  Serious: No
  Sender: FDA-Public Use
  Company Number: US-009507513-1510USA002344

PATIENT
  Age: 17 Year
  Sex: Female
  Weight: 48.73 kg

DRUGS (1)
  1. NEXPLANON [Suspect]
     Active Substance: ETONOGESTREL
     Indication: CONTRACEPTION
     Dosage: UNK
     Route: 059
     Dates: start: 20150930

REACTIONS (1)
  - Implant site pruritus [Unknown]

NARRATIVE: CASE EVENT DATE: 20150930
